FAERS Safety Report 7943104-9 (Version None)
Quarter: 2011Q4

REPORT INFORMATION
  Report Type: 
  Country: None (occurrence: None)
  Receive Date: 20111128
  Receipt Date: 20111114
  Transmission Date: 20120403
  Serious: Yes (Hospitalization, Other)
  Sender: FDA-Public Use
  Company Number: PHHY2011JP099968

PATIENT
  Age: 68 Year
  Sex: Male

DRUGS (4)
  1. CYCLOSPORINE [Suspect]
     Indication: PAROXYSMAL NOCTURNAL HAEMOGLOBINURIA
  2. ECULIZUMAB [Suspect]
     Dosage: 900 MG, BIWEEKLY
     Route: 042
  3. PREDNISONE TAB [Concomitant]
  4. ECULIZUMAB [Suspect]
     Indication: PAROXYSMAL NOCTURNAL HAEMOGLOBINURIA
     Dosage: 600 MG, WEEKLY
     Dates: start: 20080201

REACTIONS (10)
  - UROBILINOGEN URINE INCREASED [None]
  - HAEMOLYSIS [None]
  - CHILLS [None]
  - EXTRAVASCULAR HAEMOLYSIS [None]
  - PYREXIA [None]
  - INFECTION [None]
  - DYSPNOEA EXERTIONAL [None]
  - JAUNDICE [None]
  - ANAEMIA [None]
  - DRUG INEFFECTIVE [None]
